FAERS Safety Report 14146406 (Version 1)
Quarter: 2017Q4

REPORT INFORMATION
  Report Type: Spontaneous
  Country: RU (occurrence: RU)
  Receive Date: 20171031
  Receipt Date: 20171031
  Transmission Date: 20180321
  Serious: Yes (Other)
  Sender: FDA-Public Use
  Company Number: RU-ASTRAZENECA-2017SF10399

PATIENT
  Sex: Male
  Weight: 86 kg

DRUGS (7)
  1. SIMVASTATIN. [Concomitant]
     Active Substance: SIMVASTATIN
  2. NIFEDIPINE. [Concomitant]
     Active Substance: NIFEDIPINE
  3. ASPIRIN. [Concomitant]
     Active Substance: ASPIRIN
  4. NITROSPRAY [Concomitant]
  5. METOPROLOL. [Concomitant]
     Active Substance: METOPROLOL
  6. BRILINTA [Suspect]
     Active Substance: TICAGRELOR
     Indication: MYOCARDIAL INFARCTION
     Route: 048
     Dates: start: 201703
  7. CARDICET [Concomitant]

REACTIONS (4)
  - Weight increased [Recovered/Resolved]
  - Dyspnoea [Not Recovered/Not Resolved]
  - Transient ischaemic attack [Recovered/Resolved]
  - Blood pressure increased [Unknown]

NARRATIVE: CASE EVENT DATE: 201707
